FAERS Safety Report 25158688 (Version 4)
Quarter: 2025Q2

REPORT INFORMATION
  Report Type: Spontaneous
  Country: CA (occurrence: CA)
  Receive Date: 20250404
  Receipt Date: 20250604
  Transmission Date: 20250716
  Serious: Yes (Other)
  Sender: CELLTRION
  Company Number: CA-PFIZER INC-202500025075

PATIENT

DRUGS (4)
  1. INFLECTRA [Suspect]
     Active Substance: INFLIXIMAB-DYYB
     Indication: Crohn^s disease
     Route: 042
     Dates: start: 20230817
  2. INFLECTRA [Suspect]
     Active Substance: INFLIXIMAB-DYYB
     Route: 042
     Dates: start: 20250102, end: 20250102
  3. INFLECTRA [Suspect]
     Active Substance: INFLIXIMAB-DYYB
     Route: 042
     Dates: start: 20250212
  4. INFLECTRA [Suspect]
     Active Substance: INFLIXIMAB-DYYB
     Route: 042
     Dates: start: 20250327

REACTIONS (5)
  - Diabetes mellitus inadequate control [Not Recovered/Not Resolved]
  - Diabetic foot [Recovering/Resolving]
  - Therapeutic response shortened [Unknown]
  - Decubitus ulcer [Recovering/Resolving]
  - Hyperkeratosis [Unknown]

NARRATIVE: CASE EVENT DATE: 20250101
